FAERS Safety Report 6222714-3 (Version None)
Quarter: 2009Q2

REPORT INFORMATION
  Report Type: 
  Country: None (occurrence: None)
  Receive Date: 20090609
  Receipt Date: 20090609
  Transmission Date: 20091009
  Serious: Yes (Disabling, Other)
  Sender: FDA-Public Use
  Company Number: None

PATIENT
  Age: 34 Year
  Sex: Female
  Weight: 63.5036 kg

DRUGS (1)
  1. LEVAQUIN [Suspect]
     Indication: KIDNEY INFECTION
     Dosage: 500MG ONCE A DAY PO
     Route: 048
     Dates: start: 20090528, end: 20090603

REACTIONS (3)
  - SWELLING [None]
  - TENDON DISORDER [None]
  - TENDON PAIN [None]
